FAERS Safety Report 21905943 (Version 2)
Quarter: 2023Q1

REPORT INFORMATION
  Report Type: Report from Study
  Country: CA (occurrence: CA)
  Receive Date: 20230124
  Receipt Date: 20230206
  Transmission Date: 20230418
  Serious: Yes (Hospitalization, Other)
  Sender: FDA-Public Use
  Company Number: CA-ABBVIE-22K-028-4288433-00

PATIENT
  Sex: Female

DRUGS (3)
  1. HUMIRA [Suspect]
     Active Substance: ADALIMUMAB
     Indication: Rheumatoid arthritis
     Route: 058
     Dates: start: 20080508
  2. CORTISONE [Concomitant]
     Active Substance: CORTISONE
     Indication: Product used for unknown indication
  3. CORTISONE [Concomitant]
     Active Substance: CORTISONE
     Indication: Product used for unknown indication
     Dosage: DECREASED

REACTIONS (20)
  - Hip fracture [Unknown]
  - Fall [Unknown]
  - Nerve block [Unknown]
  - Limb mass [Unknown]
  - Skin discharge [Unknown]
  - Mobility decreased [Unknown]
  - Nerve compression [Unknown]
  - Swelling [Recovering/Resolving]
  - Migraine [Not Recovered/Not Resolved]
  - Hypoaesthesia [Not Recovered/Not Resolved]
  - Pain [Unknown]
  - Pain in extremity [Not Recovered/Not Resolved]
  - Hypotension [Unknown]
  - Arthritis [Unknown]
  - Walking aid user [Unknown]
  - Musculoskeletal disorder [Unknown]
  - Limb injury [Unknown]
  - Pain in extremity [Unknown]
  - Hand deformity [Unknown]
  - Peripheral swelling [Unknown]

NARRATIVE: CASE EVENT DATE: 20200101
